FAERS Safety Report 4699445-4 (Version None)
Quarter: 2005Q2

REPORT INFORMATION
  Report Type: 
  Country: None (occurrence: None)
  Receive Date: 20050624
  Receipt Date: 20050314
  Transmission Date: 20051028
  Serious: Yes (Hospitalization, Disabling, Other)
  Sender: FDA-Public Use
  Company Number: US-MERCK-0503USA02893

PATIENT
  Age: 64 Year
  Sex: Female
  Weight: 91 kg

DRUGS (4)
  1. VIOXX [Suspect]
     Indication: ARTHRALGIA
     Route: 048
     Dates: start: 20000101, end: 20040101
  2. ISOSORBIDE [Concomitant]
     Indication: CHEST PAIN
     Route: 065
     Dates: start: 20010101
  3. ATENOLOL [Concomitant]
     Indication: HYPERTENSION
     Route: 065
     Dates: start: 20010101, end: 20040101
  4. ZOCOR [Concomitant]
     Indication: BLOOD CHOLESTEROL INCREASED
     Route: 065
     Dates: start: 20010101

REACTIONS (7)
  - BLOOD CHOLESTEROL INCREASED [None]
  - CARDIAC DISORDER [None]
  - CARPAL TUNNEL SYNDROME [None]
  - CHEST PAIN [None]
  - HEART RATE ABNORMAL [None]
  - HYPERTENSION [None]
  - MYOCARDIAL INFARCTION [None]
